FAERS Safety Report 9436700 (Version 2)
Quarter: 2013Q3

REPORT INFORMATION
  Report Type: Spontaneous
  Country: DE (occurrence: DE)
  Receive Date: 20130802
  Receipt Date: 20130811
  Transmission Date: 20140515
  Serious: Yes (Hospitalization)
  Sender: FDA-Public Use
  Company Number: DE-OTSUKA-EU-2013-10166

PATIENT
  Sex: 0

DRUGS (7)
  1. SAMSCA [Suspect]
     Indication: INAPPROPRIATE ANTIDIURETIC HORMONE SECRETION
     Dosage: 15 MG MILLIGRAM(S), QD
     Route: 048
  2. ACETYLSALICYLIC ACID [Concomitant]
     Dosage: 100 MG MILLIGRAM(S), QD
     Route: 048
  3. BELOC ZOK [Concomitant]
     Dosage: UNK, QD
     Route: 065
  4. AMLODIPIN [Concomitant]
     Dosage: 5 MG MILLIGRAM(S), QD
     Route: 065
  5. KEPPRA [Concomitant]
     Dosage: 250 MG MILLIGRAM(S), BID
     Route: 065
  6. ZOLPIDEM [Concomitant]
     Dosage: 10 MG MILLIGRAM(S), QD
     Route: 065
  7. VERGENTAN [Concomitant]
     Dosage: UNK UNK, UNKNOWN
     Route: 065

REACTIONS (1)
  - Drug ineffective [Recovered/Resolved]
